FAERS Safety Report 8032875-1 (Version None)
Quarter: 2012Q1

REPORT INFORMATION
  Report Type: 
  Country: None (occurrence: None)
  Receive Date: 20120110
  Receipt Date: 20120105
  Transmission Date: 20120608
  Serious: Yes (Other)
  Sender: FDA-Public Use
  Company Number: BR-PFIZER INC-2012004241

PATIENT
  Sex: Female

DRUGS (2)
  1. VARENICLINE TARTRATE [Suspect]
     Indication: SMOKING CESSATION THERAPY
     Dosage: UNK
     Route: 048
     Dates: start: 20111201
  2. VARENICLINE TARTRATE [Suspect]
     Dosage: 1 TABLET, EVERY 12 HOURS
     Route: 048

REACTIONS (3)
  - ANXIETY [None]
  - INFARCTION [None]
  - CHEST PAIN [None]
